FAERS Safety Report 5319026-9 (Version None)
Quarter: 2007Q2

REPORT INFORMATION
  Report Type: 
  Country: None (occurrence: None)
  Receive Date: 20070508
  Receipt Date: 20070426
  Transmission Date: 20071010
  Serious: Yes (Other)
  Sender: FDA-Public Use
  Company Number: JP-ROCHE-487365

PATIENT
  Age: 40 Year
  Sex: Male
  Weight: 55 kg

DRUGS (12)
  1. TAMIFLU [Suspect]
     Route: 048
     Dates: start: 20070303, end: 20070307
  2. PROCYLIN [Concomitant]
     Route: 048
  3. PHOSBLOCK [Concomitant]
     Route: 048
  4. ALDOMET [Concomitant]
     Route: 048
  5. AMLODIN [Concomitant]
     Route: 048
  6. DIOVAN [Concomitant]
     Route: 048
  7. ALFAROL [Concomitant]
     Route: 048
  8. KALIMATE [Concomitant]
     Route: 048
  9. TANKARU [Concomitant]
     Route: 048
  10. RIVOTRIL [Concomitant]
     Route: 048
  11. CYANOCOBALAMIN [Concomitant]
     Route: 048
  12. FORSENID [Concomitant]
     Route: 048

REACTIONS (1)
  - ABNORMAL BEHAVIOUR [None]
